FAERS Safety Report 9844597 (Version 1)
Quarter: 2014Q1

REPORT INFORMATION
  Report Type: Spontaneous
  Country: US (occurrence: None)
  Receive Date: 20140123
  Receipt Date: 20140123
  Transmission Date: 20141002
  Serious: Yes (Disabling)
  Sender: FDA-Public Use
  Company Number: None

PATIENT
  Age: 51 Year
  Sex: Male
  Weight: 145.15 kg

DRUGS (1)
  1. LEVOFLOXACIN [Suspect]
     Indication: GASTROINTESTINAL INFECTION
     Route: 048
     Dates: start: 20131102, end: 20131110

REACTIONS (10)
  - Sinusitis [None]
  - Pain in extremity [None]
  - Arthralgia [None]
  - Pain in extremity [None]
  - Activities of daily living impaired [None]
  - Musculoskeletal pain [None]
  - Arthralgia [None]
  - Arthralgia [None]
  - Tendon disorder [None]
  - Drug hypersensitivity [None]
